FAERS Safety Report 21004839 (Version 1)
Quarter: 2022Q2

REPORT INFORMATION
  Report Type: Spontaneous
  Country: GB (occurrence: GB)
  Receive Date: 20220624
  Receipt Date: 20220624
  Transmission Date: 20220720
  Serious: Yes (Other)
  Sender: FDA-Public Use
  Company Number: GB-MHRA-MED-202206132013011150-JYFTZ

PATIENT
  Sex: Female

DRUGS (2)
  1. NAPROXEN [Suspect]
     Active Substance: NAPROXEN
     Indication: Product used for unknown indication
     Dosage: 500 MILLIGRAM DAILY; JUST AFTER FOODK, THERAPY DURATION : 10 DAYS, UNIT DOSE :  250 MG, FREQUENCY :
     Route: 065
     Dates: start: 20220601, end: 20220611
  2. OMEPRAZOLE [Concomitant]
     Active Substance: OMEPRAZOLE
     Indication: Product used for unknown indication
     Dosage: THERAPY DURATION : 10 DAYS
     Dates: start: 20220601, end: 20220611

REACTIONS (1)
  - Skin burning sensation [Not Recovered/Not Resolved]

NARRATIVE: CASE EVENT DATE: 20220611
